FAERS Safety Report 11005574 (Version 2)
Quarter: 2016Q1

REPORT INFORMATION
  Report Type: Spontaneous
  Country: US (occurrence: US)
  Receive Date: 20150409
  Receipt Date: 20160331
  Transmission Date: 20160525
  Serious: No
  Sender: FDA-Public Use
  Company Number: US-GLAXOSMITHKLINE-US2015045735

PATIENT
  Sex: Female
  Weight: 91.61 kg

DRUGS (1)
  1. FLOVENT [Suspect]
     Active Substance: FLUTICASONE PROPIONATE
     Indication: MULTIPLE ALLERGIES
     Dosage: 1 DF, 1D
     Route: 045
     Dates: start: 201409, end: 201502

REACTIONS (5)
  - Pain in jaw [Recovered/Resolved]
  - Insomnia [Recovered/Resolved]
  - Off label use [Unknown]
  - Underdose [Unknown]
  - Incorrect route of drug administration [Unknown]
